FAERS Safety Report 7023477-4 (Version None)
Quarter: 2010Q3

REPORT INFORMATION
  Report Type: 
  Country: None (occurrence: None)
  Receive Date: 20100929
  Receipt Date: 20100915
  Transmission Date: 20110219
  Serious: Yes (Hospitalization)
  Sender: FDA-Public Use
  Company Number: 2010P1001461

PATIENT
  Sex: Female

DRUGS (18)
  1. FENTANYL [Suspect]
     Indication: PAIN
     Dosage: 75 MCG/HR Q3D TDER
     Route: 062
     Dates: start: 20100801, end: 20100912
  2. FENTANYL [Suspect]
     Indication: PAIN
     Dosage: 50 MCG/HR Q3D TDER
     Route: 062
  3. FENTANYL [Suspect]
     Indication: PAIN
     Dosage: 50 MCG/HR Q3D TDER
     Route: 062
  4. PLAVIX [Concomitant]
  5. LISINOPRIL [Concomitant]
  6. SIMVASTATIN [Concomitant]
  7. COREG [Concomitant]
  8. PRANDIN [Concomitant]
  9. INSULIN [Concomitant]
  10. RANITIDINE [Concomitant]
  11. FUROSEMIDE [Concomitant]
  12. CLONAZEPAM [Concomitant]
  13. DOCUSATE [Concomitant]
  14. MIRALEX [Concomitant]
  15. ASPIRIN [Concomitant]
  16. CENTRUM SILVER [Concomitant]
  17. CALCIUM + D [Concomitant]
  18. OXYCODONE HCL AND ACETAMINOPHEN [Concomitant]

REACTIONS (5)
  - DYSPNOEA [None]
  - INADEQUATE ANALGESIA [None]
  - LOSS OF CONSCIOUSNESS [None]
  - OEDEMA PERIPHERAL [None]
  - RENAL DISORDER [None]
